FAERS Safety Report 24363697 (Version 1)
Quarter: 2024Q3

REPORT INFORMATION
  Report Type: Spontaneous
  Country: US (occurrence: US)
  Receive Date: 20240925
  Receipt Date: 20240925
  Transmission Date: 20241017
  Serious: Yes (Hospitalization, Other)
  Sender: BRISTOL MYERS SQUIBB
  Company Number: US-BRISTOL-MYERS SQUIBB COMPANY-2024-151339

PATIENT
  Age: 70 Year
  Sex: Female

DRUGS (4)
  1. ELIQUIS [Suspect]
     Active Substance: APIXABAN
     Indication: Product used for unknown indication
     Dates: start: 20240902
  2. ELIQUIS [Suspect]
     Active Substance: APIXABAN
     Dates: start: 20240903
  3. KEVEYIS [Concomitant]
     Active Substance: DICHLORPHENAMIDE
     Indication: Product used for unknown indication
     Dates: start: 20240902
  4. PROPAFENONE [Concomitant]
     Active Substance: PROPAFENONE
     Indication: Product used for unknown indication
     Dates: start: 20240902

REACTIONS (2)
  - Seizure [Unknown]
  - Atrial fibrillation [Recovered/Resolved]

NARRATIVE: CASE EVENT DATE: 20240902
